FAERS Safety Report 7417891-2 (Version None)
Quarter: 2011Q2

REPORT INFORMATION
  Report Type: 
  Country: None (occurrence: None)
  Receive Date: 20110415
  Receipt Date: 20101109
  Transmission Date: 20111010
  Serious: Yes (Hospitalization, Other)
  Sender: FDA-Public Use
  Company Number: US-BAYER-201014096NA

PATIENT
  Age: 36 Year
  Sex: Female
  Weight: 129.55 kg

DRUGS (13)
  1. AMBIEN [Concomitant]
     Dates: start: 20080101
  2. FENTANYL [Concomitant]
     Route: 042
  3. LORTAB [Concomitant]
  4. TOPROL-XL [Concomitant]
     Dates: start: 20080101, end: 20090101
  5. IBUPROFEN [Concomitant]
  6. YAZ [Suspect]
     Indication: ORAL CONTRACEPTION
     Route: 048
     Dates: start: 20070901, end: 20080301
  7. ANTIBIOTICS [Concomitant]
  8. ZOFRAN [Concomitant]
     Route: 042
     Dates: start: 20071101, end: 20071101
  9. UNKNOWN DRUG [Concomitant]
     Indication: BLOOD CHOLESTEROL INCREASED
  10. YASMIN [Suspect]
     Route: 048
     Dates: start: 20071101, end: 20080301
  11. METOPROLOL [Concomitant]
     Dates: start: 20080101
  12. CYMBALTA [Concomitant]
     Dates: start: 20080101
  13. DEPO-PROVERA [Concomitant]
     Indication: CONTRACEPTION
     Dates: start: 20040101

REACTIONS (8)
  - CHOLECYSTITIS CHRONIC [None]
  - ABDOMINAL PAIN UPPER [None]
  - ANXIETY [None]
  - ABDOMINAL PAIN [None]
  - DEPRESSION [None]
  - CHOLESTEROSIS [None]
  - ARRHYTHMIA [None]
  - CHOLELITHIASIS [None]
